FAERS Safety Report 9621287 (Version 2)
Quarter: 2013Q4

REPORT INFORMATION
  Report Type: Spontaneous
  Country: SE (occurrence: SE)
  Receive Date: 20131015
  Receipt Date: 20131018
  Transmission Date: 20140711
  Serious: Yes (Other)
  Sender: FDA-Public Use
  Company Number: SE-JNJFOC-20131004297

PATIENT
  Age: 47 Year
  Sex: Female

DRUGS (9)
  1. XARELTO [Suspect]
     Indication: ATRIAL FIBRILLATION
     Route: 048
     Dates: start: 20130410
  2. XARELTO [Suspect]
     Indication: CEREBROVASCULAR ACCIDENT
     Route: 048
     Dates: start: 20130410
  3. METFORMIN [Concomitant]
     Route: 065
  4. FERROUS  SULFATE [Concomitant]
     Route: 065
  5. BEHEPAN [Concomitant]
     Route: 065
  6. ENALAPRIL [Concomitant]
     Route: 065
  7. SIMVASTATIN [Concomitant]
     Route: 065
  8. OXASCAND [Concomitant]
     Route: 065
  9. CIPRALEX [Concomitant]
     Route: 065
     Dates: start: 20131001

REACTIONS (2)
  - Toxicity to various agents [Unknown]
  - Intentional overdose [Unknown]
